FAERS Safety Report 8131344-8 (Version None)
Quarter: 2012Q1

REPORT INFORMATION
  Report Type: 
  Country: None (occurrence: None)
  Receive Date: 20120210
  Receipt Date: 20120210
  Transmission Date: 20120608
  Serious: Yes (Hospitalization)
  Sender: FDA-Public Use
  Company Number: None

PATIENT
  Age: 52 Year
  Sex: Male
  Weight: 99.6 kg

DRUGS (1)
  1. CLINDAMYCIN [Suspect]
     Indication: INFECTION
     Dosage: 300 MG PO
     Route: 048
     Dates: start: 20110926, end: 20111014

REACTIONS (3)
  - DRUG HYPERSENSITIVITY [None]
  - URTICARIA [None]
  - RASH PAPULAR [None]
